FAERS Safety Report 6584736-2 (Version None)
Quarter: 2010Q1

REPORT INFORMATION
  Report Type: 
  Country: None (occurrence: None)
  Receive Date: 20100217
  Receipt Date: 20100208
  Transmission Date: 20100710
  Serious: Yes (Other)
  Sender: FDA-Public Use
  Company Number: PHHY2010JP03968

PATIENT
  Age: 62 Year
  Sex: Male

DRUGS (5)
  1. NEORAL [Suspect]
     Indication: PSORIASIS
     Dosage: 40 MG/DAY
     Route: 048
     Dates: start: 20090101
  2. GASTER D [Concomitant]
     Route: 048
  3. TENORMIN [Concomitant]
     Dosage: UNK
     Route: 048
  4. DIOVAN [Concomitant]
     Dosage: UNK
     Route: 048
  5. PITAVASTATIN CALCIUM [Concomitant]
     Dosage: UNK
     Route: 048

REACTIONS (2)
  - HAEMATOCHEZIA [None]
  - LARGE INTESTINAL ULCER [None]
